FAERS Safety Report 13896790 (Version 1)
Quarter: 2017Q3

REPORT INFORMATION
  Report Type: Spontaneous
  Country: US (occurrence: US)
  Receive Date: 20170822
  Receipt Date: 20170822
  Transmission Date: 20171127
  Serious: No
  Sender: FDA-Public Use
  Company Number: None

PATIENT
  Age: 16 Year
  Sex: Female
  Weight: 99 kg

DRUGS (4)
  1. METADATE [Concomitant]
     Active Substance: METHYLPHENIDATE HYDROCHLORIDE
  2. CLONIDINE. [Concomitant]
     Active Substance: CLONIDINE
  3. INVEGA [Suspect]
     Active Substance: PALIPERIDONE
     Indication: AFFECTIVE DISORDER
     Dosage: ?          QUANTITY:1 CAPSULE(S);?
  4. BUSPAR [Concomitant]
     Active Substance: BUSPIRONE HYDROCHLORIDE

REACTIONS (2)
  - Menstruation irregular [None]
  - Breast discharge [None]

NARRATIVE: CASE EVENT DATE: 20170601
